FAERS Safety Report 5992021-2 (Version None)
Quarter: 2008Q4

REPORT INFORMATION
  Report Type: 
  Country: None (occurrence: None)
  Receive Date: 20081211
  Receipt Date: 20081211
  Transmission Date: 20090506
  Serious: Yes (Death)
  Sender: FDA-Public Use
  Company Number: US-ROXANE LABORATORIES, INC.-2007-BP-17323RO

PATIENT
  Sex: Female
  Weight: 105 kg

DRUGS (7)
  1. METHADONE HCL [Suspect]
     Indication: DRUG WITHDRAWAL MAINTENANCE THERAPY
     Route: 048
     Dates: start: 20060612, end: 20060616
  2. METHADONE HCL [Suspect]
     Indication: DRUG ABUSE
  3. REBIF [Suspect]
     Indication: MULTIPLE SCLEROSIS
     Route: 058
     Dates: start: 20060127, end: 20070616
  4. ANTIHYPERTENSIVE MEDICATION [Concomitant]
     Indication: HYPERTENSION
     Dates: end: 20060616
  5. ANTIDEPREESANT MEDICATION [Concomitant]
     Indication: DEPRESSION
  6. CYMBALTA [Concomitant]
     Indication: DEPRESSION
     Dosage: 30MG
     Route: 048
     Dates: start: 20060301, end: 20060616
  7. KLONOPIN [Concomitant]
     Indication: ANXIETY
     Dosage: 4MG
     Route: 048
     Dates: end: 20060616

REACTIONS (1)
  - DRUG TOXICITY [None]
